FAERS Safety Report 9735906 (Version 1)
Quarter: 2013Q4

REPORT INFORMATION
  Report Type: Spontaneous
  Country: US (occurrence: None)
  Receive Date: 20131204
  Receipt Date: 20131204
  Transmission Date: 20140711
  Serious: Yes (Hospitalization, Other)
  Sender: FDA-Public Use
  Company Number: FK201305186

PATIENT
  Age: 8 Year
  Sex: Male

DRUGS (3)
  1. IRINOTECAN (IRINOTECAN) [Suspect]
     Indication: BRAIN STEM GLIOMA
  2. TEMOZOLOMIDE [Suspect]
     Indication: BRAIN STEM GLIOMA
     Route: 048
  3. BEVACIZUMAB (BEVACIZUMAB) [Suspect]
     Indication: BRAIN STEM GLIOMA
     Dosage: 15 MG/KG, 3 WK

REACTIONS (6)
  - Hypertension [None]
  - Diarrhoea [None]
  - Abdominal pain [None]
  - Hypokalaemia [None]
  - Neutropenia [None]
  - Tumour haemorrhage [None]
